FAERS Safety Report 7563147-7 (Version None)
Quarter: 2011Q2

REPORT INFORMATION
  Report Type: 
  Country: None (occurrence: None)
  Receive Date: 20110622
  Receipt Date: 20110613
  Transmission Date: 20111010
  Serious: Yes (Hospitalization, Other)
  Sender: FDA-Public Use
  Company Number: JP-ACTELION-A-CH2011-49321

PATIENT
  Sex: Male
  Weight: 5 kg

DRUGS (18)
  1. ASPIRIN [Suspect]
     Dosage: UNK
     Dates: start: 20090513, end: 20090804
  2. DENOPAMINE [Concomitant]
  3. TRACLEER [Suspect]
     Indication: PULMONARY ARTERIAL HYPERTENSION
     Dosage: 15 MG, BID
     Route: 048
     Dates: start: 20091014
  4. TRACLEER [Suspect]
     Dosage: 3 MG, BID
     Route: 048
     Dates: start: 20090220, end: 20090228
  5. TRACLEER [Suspect]
     Dosage: 7.5 MG, BID
     Route: 048
     Dates: start: 20090324, end: 20090407
  6. ASPIRIN [Suspect]
     Dosage: UNK
     Dates: start: 20090805, end: 20100710
  7. TRACLEER [Suspect]
     Dosage: 6 MG, BID
     Route: 048
     Dates: start: 20090313, end: 20090323
  8. TRACLEER [Suspect]
     Dosage: 12 MG, BID
     Route: 048
     Dates: start: 20090805, end: 20091013
  9. TRANILAST [Concomitant]
  10. FERROUS CITRATE [Concomitant]
  11. OXYGEN [Concomitant]
  12. ASPIRIN [Suspect]
     Indication: THROMBOSIS PROPHYLAXIS
     Dosage: UNK
     Dates: start: 20090222, end: 20090512
  13. SPIRONOLACTONE [Concomitant]
  14. FLUTICASONE PROPIONATE [Concomitant]
  15. TRACLEER [Suspect]
     Dosage: 10 MG, BID
     Route: 048
     Dates: start: 20090408, end: 20090804
  16. TRACLEER [Suspect]
     Dosage: 5 MG, BID
     Route: 048
     Dates: start: 20090301, end: 20090312
  17. TRACLEER [Suspect]
     Dosage: 3 MG, BID
     Route: 048
     Dates: start: 20090120, end: 20090226
  18. FUROSEMIDE [Concomitant]

REACTIONS (1)
  - HAEMOPTYSIS [None]
